FAERS Safety Report 10204221 (Version 1)
Quarter: 2014Q2

REPORT INFORMATION
  Report Type: Spontaneous
  Country: US (occurrence: None)
  Receive Date: 20140527
  Receipt Date: 20140527
  Transmission Date: 20141212
  Serious: Yes (Hospitalization)
  Sender: FDA-Public Use
  Company Number: None

PATIENT
  Age: 35 Year
  Sex: Male

DRUGS (17)
  1. ANTITHYMOCYTE GLOBULIN [Suspect]
     Indication: IMMUNOSUPPRESSION
     Route: 042
     Dates: start: 20120719, end: 20120719
  2. POTASSIUM PHOSPHATE [Concomitant]
  3. DIPHENHYDRAMINE [Concomitant]
  4. ACETAMINOPHEN [Concomitant]
  5. METHYLPREDNISOLONE [Concomitant]
  6. ENALAPRIL [Concomitant]
  7. HEPARIN [Concomitant]
  8. FUROSEMIDE [Concomitant]
  9. MAGNESIUM SULFATE [Concomitant]
  10. MYCOPHENOLATE [Concomitant]
  11. NYSTATIN [Concomitant]
  12. OXYCONTIN [Concomitant]
  13. POTASSIUM CHLORIDE [Concomitant]
  14. RANITIDINE [Concomitant]
  15. SULFAMETHOXAZOLE-TRIMETHOPRIM [Concomitant]
  16. TACROLIMUS [Concomitant]
  17. VALGANCICLOVIR [Concomitant]

REACTIONS (5)
  - Dyspnoea [None]
  - Dyspnoea exertional [None]
  - Abdominal distension [None]
  - Transplant rejection [None]
  - Serum sickness [None]
